FAERS Safety Report 5188840-5 (Version None)
Quarter: 2006Q4

REPORT INFORMATION
  Report Type: 
  Country: None (occurrence: None)
  Receive Date: 20061215
  Receipt Date: 20061127
  Transmission Date: 20070319
  Serious: Yes (Hospitalization)
  Sender: FDA-Public Use
  Company Number: D-06-0060

PATIENT
  Sex: Female

DRUGS (1)
  1. JANTOVEN [Suspect]
     Dosage: PO
     Route: 048

REACTIONS (3)
  - INTERNATIONAL NORMALISED RATIO ABNORMAL [None]
  - INTRA-ABDOMINAL HAEMORRHAGE [None]
  - PROTHROMBIN TIME ABNORMAL [None]
